FAERS Safety Report 4279686-0 (Version None)
Quarter: 2004Q1

REPORT INFORMATION
  Report Type: 
  Country: None (occurrence: None)
  Receive Date: 20040122
  Receipt Date: 20040108
  Transmission Date: 20041129
  Serious: Yes (Other)
  Sender: FDA-Public Use
  Company Number: 2004193703GB

PATIENT
  Sex: Male

DRUGS (1)
  1. ALDACTONE [Suspect]
     Dosage: 25 MG, QD, ORAL
     Route: 048

REACTIONS (2)
  - ALOPECIA [None]
  - OSTEOPOROSIS [None]
